FAERS Safety Report 5942412-0 (Version None)
Quarter: 2008Q4

REPORT INFORMATION
  Report Type: 
  Country: None (occurrence: None)
  Receive Date: 20081105
  Receipt Date: 20081024
  Transmission Date: 20090506
  Serious: Yes (Other)
  Sender: FDA-Public Use
  Company Number: JP-PFIZER INC-2008085171

PATIENT
  Age: 66 Year
  Sex: Female

DRUGS (6)
  1. CARDENALIN [Suspect]
     Indication: HYPERTENSION
     Route: 048
     Dates: start: 20070823
  2. HYALEIN [Concomitant]
  3. HYALURONIC ACID [Concomitant]
  4. LOSARTAN POTASSIUM AND HYDROCHLOROTHIAZIDE [Concomitant]
  5. CALBLOCK [Concomitant]
  6. URSO 250 [Concomitant]

REACTIONS (1)
  - INTRAOCULAR PRESSURE INCREASED [None]
